FAERS Safety Report 18417464 (Version 1)
Quarter: 2020Q4

REPORT INFORMATION
  Report Type: Spontaneous
  Country: US (occurrence: US)
  Receive Date: 20201022
  Receipt Date: 20201022
  Transmission Date: 20210114
  Serious: No
  Sender: FDA-Public Use
  Company Number: US-SEATTLE GENETICS-2020SGN03450

PATIENT
  Sex: Female

DRUGS (3)
  1. TUKYSA [Suspect]
     Active Substance: TUCATINIB
     Indication: BREAST CANCER FEMALE
     Dosage: UNK, BID
  2. HERCEPTIN [Concomitant]
     Active Substance: TRASTUZUMAB
     Indication: BREAST CANCER FEMALE
     Dosage: UNK, Q21D
  3. TUKYSA [Suspect]
     Active Substance: TUCATINIB
     Dosage: 2 DF, BID

REACTIONS (11)
  - Dizziness [Unknown]
  - Alopecia [Unknown]
  - Dehydration [Unknown]
  - Gastrooesophageal reflux disease [Unknown]
  - Renal disorder [Unknown]
  - Nausea [Unknown]
  - Increased appetite [Unknown]
  - Unevaluable event [Unknown]
  - Madarosis [Unknown]
  - Fatigue [Unknown]
  - Diarrhoea [Recovering/Resolving]
